FAERS Safety Report 12288072 (Version 2)
Quarter: 2020Q2

REPORT INFORMATION
  Report Type: Spontaneous
  Country: CA (occurrence: CA)
  Receive Date: 20160420
  Receipt Date: 20200617
  Transmission Date: 20200713
  Serious: Yes (Hospitalization)
  Sender: FDA-Public Use
  Company Number: CA-009507513-1604CAN009472

PATIENT
  Age: 53 Year
  Sex: Female
  Weight: 78.6 kg

DRUGS (10)
  1. FERROUS SULFATE. [Concomitant]
     Active Substance: FERROUS SULFATE
     Dosage: UNK
     Route: 065
  2. HYDROMORPHONE [Concomitant]
     Active Substance: HYDROMORPHONE
     Dosage: UNK
     Route: 065
  3. CORTEF [Concomitant]
     Active Substance: HYDROCORTISONE
     Dosage: UNK
     Route: 065
  4. SYNTHROID [Concomitant]
     Active Substance: LEVOTHYROXINE SODIUM
     Dosage: UNK
     Route: 065
  5. ANUSOL HC (HYDROCORTISONE ACETATE (+) ZINC SULFATE) [Concomitant]
     Dosage: UNK
     Route: 065
  6. INTRON A [Suspect]
     Active Substance: INTERFERON ALFA-2B
     Indication: ERDHEIM-CHESTER DISEASE
     Dosage: 3 INTERNATIONAL UNITS MILLIONS, 3 EVERY 1 (DAYS)
     Route: 058
     Dates: start: 20151112, end: 20151128
  7. ACETAMINOPHEN. [Concomitant]
     Active Substance: ACETAMINOPHEN
     Dosage: UNK
     Route: 065
  8. DOCUSATE SODIUM. [Concomitant]
     Active Substance: DOCUSATE SODIUM
     Dosage: UNK
     Route: 065
  9. LORAZEPAM. [Concomitant]
     Active Substance: LORAZEPAM
     Dosage: UNK
     Route: 065
  10. DDAVP [Concomitant]
     Active Substance: DESMOPRESSIN ACETATE
     Dosage: UNK
     Route: 065

REACTIONS (4)
  - Hyperglycaemia [Unknown]
  - Hyperosmolar state [Unknown]
  - Metabolic acidosis [Unknown]
  - Confusional state [Unknown]

NARRATIVE: CASE EVENT DATE: 20151128
